FAERS Safety Report 6384394-6 (Version None)
Quarter: 2009Q4

REPORT INFORMATION
  Report Type: 
  Country: None (occurrence: None)
  Receive Date: 20091001
  Receipt Date: 20090923
  Transmission Date: 20100525
  Serious: Yes (Hospitalization)
  Sender: FDA-Public Use
  Company Number: US-JNJFOC-20090907871

PATIENT
  Age: 85 Year
  Sex: Female

DRUGS (4)
  1. REMICADE [Suspect]
     Indication: RHEUMATOID ARTHRITIS
     Route: 042
     Dates: start: 20080201
  2. ANTI-HYPERTENSIVE [Concomitant]
     Indication: HYPERTENSION
  3. ACID REFLUX MEDICATION [Concomitant]
     Indication: GASTROOESOPHAGEAL REFLUX DISEASE
  4. OSTEOPOROSIS MEDICINE [Concomitant]
     Indication: OSTEOPOROSIS

REACTIONS (2)
  - CORONARY ARTERY DISEASE [None]
  - LEUKOPENIA [None]
